FAERS Safety Report 7930857-9 (Version None)
Quarter: 2011Q4

REPORT INFORMATION
  Report Type: 
  Country: None (occurrence: None)
  Receive Date: 20111121
  Receipt Date: 20111114
  Transmission Date: 20120403
  Serious: Yes (Death, Hospitalization)
  Sender: FDA-Public Use
  Company Number: US-ACTELION-A-US2011-55679

PATIENT

DRUGS (2)
  1. MULTAQ [Concomitant]
  2. TRACLEER [Suspect]
     Indication: PULMONARY ARTERIAL HYPERTENSION
     Dosage: UNK MG, UNK
     Route: 048
     Dates: start: 20110616, end: 20110101

REACTIONS (10)
  - CORONARY ARTERY BYPASS [None]
  - MITRAL VALVE INCOMPETENCE [None]
  - FLUID RETENTION [None]
  - DEATH [None]
  - DYSPNOEA [None]
  - CORONARY ARTERY DISEASE [None]
  - DIALYSIS [None]
  - TRICUSPID VALVE INCOMPETENCE [None]
  - ASCITES [None]
  - ANAEMIA [None]
